FAERS Safety Report 8832351 (Version 1)
Quarter: 2012Q4

REPORT INFORMATION
  Report Type: 
  Country: US (occurrence: US)
  Receive Date: 20121009
  Receipt Date: 20121009
  Transmission Date: 20130627
  Serious: Yes (Other)
  Sender: FDA-Public Use
  Company Number: PHHY2012US085989

PATIENT
  Age: 79 Year
  Sex: Female

DRUGS (5)
  1. BUFFERIN REGULAR STRENGTH [Suspect]
     Indication: ARTHRITIS
     Dosage: 2 to 4 a day
     Route: 048
     Dates: start: 1958
  2. ACETYLSALICYLIC ACID [Suspect]
     Indication: ARTHRITIS
     Dosage: 2 DF per day
     Route: 048
  3. PENICILLIN [Concomitant]
  4. LEVOTHYROXINE [Concomitant]
     Indication: THYROID DISORDER
     Dosage: 1 DF, QD
     Route: 048
  5. ANTIHYPERTENSIVE DRUGS [Concomitant]
     Indication: HYPERTENSION
     Dosage: 2 DF, UNK
     Route: 048
     Dates: start: 2009

REACTIONS (5)
  - Arthritis [Not Recovered/Not Resolved]
  - Foot deformity [Not Recovered/Not Resolved]
  - Nasopharyngitis [Not Recovered/Not Resolved]
  - Malaise [Unknown]
  - Incorrect drug administration duration [Unknown]
